FAERS Safety Report 16767231 (Version 1)
Quarter: 2019Q3

REPORT INFORMATION
  Report Type: Spontaneous
  Country: US (occurrence: US)
  Receive Date: 20190903
  Receipt Date: 20190903
  Transmission Date: 20191005
  Serious: No
  Sender: FDA-Public Use
  Company Number: US-NEUROCRINE BIOSCIENCES INC.-2019NBI02420

PATIENT
  Age: 70 Year
  Sex: Female

DRUGS (3)
  1. INGREZZA [Suspect]
     Active Substance: VALBENAZINE
     Indication: PRODUCT USED FOR UNKNOWN INDICATION
     Dates: start: 20190720, end: 20190726
  2. INGREZZA [Suspect]
     Active Substance: VALBENAZINE
     Dates: start: 20190815
  3. INGREZZA [Suspect]
     Active Substance: VALBENAZINE
     Dates: start: 20190727, end: 20190814

REACTIONS (2)
  - Productive cough [Recovering/Resolving]
  - Hypoaesthesia [Recovering/Resolving]

NARRATIVE: CASE EVENT DATE: 20190814
